FAERS Safety Report 8455075-X (Version None)
Quarter: 2012Q2

REPORT INFORMATION
  Report Type: 
  Country: None (occurrence: None)
  Receive Date: 20120621
  Receipt Date: 20120615
  Transmission Date: 20120825
  Serious: Yes (Other)
  Sender: FDA-Public Use
  Company Number: US-BAYER-2012-044097

PATIENT
  Age: 84 Year
  Sex: Male
  Weight: 94 kg

DRUGS (4)
  1. LEUKINE [Suspect]
     Dosage: 250 ?G, QD
     Route: 058
     Dates: start: 20120307, end: 20120320
  2. MDX-010 [Suspect]
     Dosage: 870 MG, QD
     Route: 042
     Dates: start: 20120307, end: 20120307
  3. LEUKINE [Suspect]
     Indication: MALIGNANT MELANOMA
     Dosage: 250 ?G, QD ON DAYS 1-14 OF A 21 DAY CYCLE
     Dates: start: 20110421
  4. MDX-010 [Suspect]
     Indication: MALIGNANT MELANOMA
     Dosage: 10 MG/KG, ON DAY 1 OF A 21 DAY CYCLE (CYCLE 1-4)
     Dates: start: 20110421

REACTIONS (3)
  - OEDEMA PERIPHERAL [None]
  - ARTHRITIS [None]
  - AUTOIMMUNE DISORDER [None]
